FAERS Safety Report 7702499-1 (Version None)
Quarter: 2011Q3

REPORT INFORMATION
  Report Type: 
  Country: None (occurrence: None)
  Receive Date: 20110823
  Receipt Date: 20110816
  Transmission Date: 20111222
  Serious: Yes (Hospitalization)
  Sender: FDA-Public Use
  Company Number: FR-BIOGENIDEC-2011BI031349

PATIENT
  Age: 14 Year
  Sex: Female

DRUGS (2)
  1. AVONEX [Suspect]
     Indication: MULTIPLE SCLEROSIS
     Route: 030
     Dates: end: 20110101
  2. AVONEX [Suspect]
     Route: 030
     Dates: start: 20110101

REACTIONS (2)
  - EMOTIONAL DISORDER [None]
  - AGITATION [None]
